FAERS Safety Report 4456567-0 (Version None)
Quarter: 2004Q3

REPORT INFORMATION
  Report Type: 
  Country: None (occurrence: None)
  Receive Date: 20040921
  Receipt Date: 20040908
  Transmission Date: 20050211
  Serious: Yes (Hospitalization)
  Sender: FDA-Public Use
  Company Number: 187447

PATIENT
  Age: 36 Year
  Sex: Female
  Weight: 54.4316 kg

DRUGS (7)
  1. AVONEX [Suspect]
     Indication: MULTIPLE SCLEROSIS
     Dosage: 30 MCG QW IM
     Route: 030
     Dates: start: 19990101, end: 20030801
  2. BIOGEN [Suspect]
     Indication: MULTIPLE SCLEROSIS
     Dosage: 30 MCG QW IM
     Route: 030
     Dates: start: 20030830
  3. TRUSOPT [Concomitant]
  4. XALATAN [Concomitant]
  5. ALLEGRA [Concomitant]
  6. SINGULAIR [Concomitant]
  7. ALLERGY MEDICATION [Concomitant]

REACTIONS (6)
  - ALLERGY TEST POSITIVE [None]
  - DIZZINESS [None]
  - MENIERE'S DISEASE [None]
  - NAUSEA [None]
  - TINNITUS [None]
  - VISION BLURRED [None]
